FAERS Safety Report 9595517 (Version 1)
Quarter: 2013Q3

REPORT INFORMATION
  Report Type: Spontaneous
  Country: US (occurrence: None)
  Receive Date: 20130927
  Receipt Date: 20130927
  Transmission Date: 20140515
  Serious: Yes (Hospitalization)
  Sender: FDA-Public Use
  Company Number: CABO-13002998

PATIENT
  Age: 59 Year
  Sex: Male

DRUGS (9)
  1. COMETRIQ (CABOZANTINE) CAPSULE [Suspect]
     Indication: THYROID CANCER
     Route: 048
     Dates: start: 20130218, end: 20130306
  2. LEVOTHYROXINE (LEVOTHYROXINE) [Concomitant]
  3. FENTANYL (FENTANYL) [Concomitant]
  4. CITALOPRAM (CITALOPRAM) [Concomitant]
  5. OXYCODONE (OXYCODONE) [Concomitant]
  6. IMODIUM (LOPERAMIDE HYDROCHLORIDE) (LOPERAMIDE) [Concomitant]
  7. NAPROXEN (NAPROXEN) [Concomitant]
  8. COMPAZINE (PROCHLORPERAZINE MALEATE) [Concomitant]
  9. OCTREOTIDE (OCTREOTIDE) [Concomitant]

REACTIONS (2)
  - Myocardial infarction [None]
  - Decreased appetite [None]
